FAERS Safety Report 18154020 (Version 1)
Quarter: 2020Q3

REPORT INFORMATION
  Report Type: Spontaneous
  Country: DE (occurrence: DE)
  Receive Date: 20200816
  Receipt Date: 20200816
  Transmission Date: 20201103
  Serious: Yes (Other)
  Sender: FDA-Public Use
  Company Number: NVSC2020DE224004

PATIENT
  Age: 30 Year
  Sex: Male

DRUGS (4)
  1. OXALIPLATIN. [Suspect]
     Active Substance: OXALIPLATIN
     Indication: METASTASES TO LIVER
  2. FLUOROURACIL. [Suspect]
     Active Substance: FLUOROURACIL
     Indication: METASTASES TO LIVER
  3. OXALIPLATIN. [Suspect]
     Active Substance: OXALIPLATIN
     Indication: PANCREATOBLASTOMA
     Dosage: UNK
     Route: 065
  4. FLUOROURACIL. [Suspect]
     Active Substance: FLUOROURACIL
     Indication: PANCREATOBLASTOMA
     Dosage: UNK
     Route: 065

REACTIONS (5)
  - Pancreatoblastoma [Unknown]
  - Malignant neoplasm progression [Unknown]
  - Metastases to liver [Unknown]
  - Product use in unapproved indication [Unknown]
  - Therapy partial responder [Unknown]
